FAERS Safety Report 15607529 (Version 2)
Quarter: 2018Q4

REPORT INFORMATION
  Report Type: Spontaneous
  Country: FR (occurrence: FR)
  Receive Date: 20181112
  Receipt Date: 20181121
  Transmission Date: 20190205
  Serious: Yes (Hospitalization)
  Sender: FDA-Public Use
  Company Number: FR-PFIZER INC-2018453539

PATIENT
  Age: 48 Year
  Sex: Female

DRUGS (5)
  1. AROMASINE [Suspect]
     Active Substance: EXEMESTANE
     Indication: BREAST CANCER
     Dosage: 25 MG, 1X/DAY
     Route: 048
     Dates: start: 2017
  2. FUROSEMIDE. [Concomitant]
     Active Substance: FUROSEMIDE
  3. ENANTONE [LEUPRORELIN ACETATE] [Suspect]
     Active Substance: LEUPROLIDE ACETATE
     Indication: BREAST CANCER
     Dosage: 1 INJECTION X MONTH
     Route: 058
     Dates: start: 2017
  4. RAMIPRIL. [Concomitant]
     Active Substance: RAMIPRIL
  5. BISOPROLOL HEMIFUMARATE [Concomitant]
     Active Substance: BISOPROLOL FUMARATE

REACTIONS (1)
  - Cerebrovascular accident [Recovered/Resolved]

NARRATIVE: CASE EVENT DATE: 20181002
